FAERS Safety Report 17946893 (Version 1)
Quarter: 2020Q2

REPORT INFORMATION
  Report Type: Report from Study
  Country: US (occurrence: US)
  Receive Date: 20200626
  Receipt Date: 20200626
  Transmission Date: 20200714
  Serious: Yes (Hospitalization)
  Sender: FDA-Public Use
  Company Number: US-AMGEN-USASL2019210228

PATIENT
  Age: 84 Year
  Sex: Female

DRUGS (2)
  1. REPATHA [Suspect]
     Active Substance: EVOLOCUMAB
     Indication: HYPERCHOLESTEROLAEMIA
     Dosage: 420 MILLIGRAM, QMO
     Route: 065
  2. REPATHA [Suspect]
     Active Substance: EVOLOCUMAB
     Indication: BLOOD CHOLESTEROL INCREASED
     Dosage: UNK
     Route: 065
     Dates: start: 201911

REACTIONS (6)
  - Blood pressure increased [Not Recovered/Not Resolved]
  - Adverse reaction [Unknown]
  - Upper respiratory tract infection [Unknown]
  - Device use error [Unknown]
  - Urinary tract infection [Unknown]
  - Back pain [Unknown]

NARRATIVE: CASE EVENT DATE: 201912
